FAERS Safety Report 5330496-2 (Version None)
Quarter: 2007Q2

REPORT INFORMATION
  Report Type: 
  Country: None (occurrence: None)
  Receive Date: 20070516
  Receipt Date: 20070508
  Transmission Date: 20071010
  Serious: No
  Sender: FDA-Public Use
  Company Number: 2007-158472-NL

PATIENT
  Age: 42 Year
  Sex: Female

DRUGS (1)
  1. MARVELON [Suspect]
     Dosage: DF, ORAL
     Route: 048

REACTIONS (1)
  - MEDICATION ERROR [None]
